FAERS Safety Report 5219178-5 (Version None)
Quarter: 2007Q1

REPORT INFORMATION
  Report Type: 
  Country: None (occurrence: None)
  Receive Date: 20070125
  Receipt Date: 20070117
  Transmission Date: 20070707
  Serious: No
  Sender: FDA-Public Use
  Company Number: US-BAXTER-2007BH000464

PATIENT
  Age: 51 Year
  Sex: Male

DRUGS (12)
  1. IMMUNE GLOBULIN INTRAVENOUS (HUMAN) [Suspect]
     Indication: IMMUNODEFICIENCY COMMON VARIABLE
     Route: 042
     Dates: start: 20060822
  2. ZYRTEC [Concomitant]
     Indication: HYPERSENSITIVITY
     Route: 048
  3. ADVAIR DISKUS 100/50 [Concomitant]
     Indication: ASTHMA
     Route: 055
  4. ASTELIN [Concomitant]
     Indication: RHINITIS ALLERGIC
     Route: 045
  5. INTAL [Concomitant]
     Indication: ASTHMA
     Route: 055
  6. PATANOL [Concomitant]
     Indication: CONJUNCTIVITIS ALLERGIC
     Route: 047
  7. ASACOL [Concomitant]
     Indication: COLITIS ULCERATIVE
     Route: 048
  8. PRILOSEC [Concomitant]
     Indication: GASTROOESOPHAGEAL REFLUX DISEASE
     Route: 048
  9. PROPECIA [Concomitant]
     Indication: ALOPECIA
     Route: 048
  10. KLONOPIN [Concomitant]
     Indication: DRUG USE FOR UNKNOWN INDICATION
     Route: 048
  11. TRAZODONE HCL [Concomitant]
     Indication: DRUG USE FOR UNKNOWN INDICATION
     Route: 048
  12. TYLENOL [Concomitant]
     Indication: DRUG USE FOR UNKNOWN INDICATION
     Route: 048
     Dates: start: 20070116

REACTIONS (5)
  - CHILLS [None]
  - MYALGIA [None]
  - NAUSEA [None]
  - PYREXIA [None]
  - VASOCONSTRICTION [None]
